FAERS Safety Report 10910804 (Version 1)
Quarter: 2015Q1

REPORT INFORMATION
  Report Type: Spontaneous
  Country: US (occurrence: US)
  Receive Date: 20150312
  Receipt Date: 20150312
  Transmission Date: 20150721
  Serious: No
  Sender: FDA-Public Use
  Company Number: US-ABBVIE-14P-163-1296020-00

PATIENT
  Sex: Male
  Weight: 84 kg

DRUGS (5)
  1. RELPAX [Suspect]
     Active Substance: ELETRIPTAN HYDROBROMIDE
     Indication: MIGRAINE
     Dosage: AS REQUIRED, TAKE SECOND RELPAX WHEN HEADACHES DONT GO AWAY
     Route: 065
  2. ATENOLOL. [Concomitant]
     Active Substance: ATENOLOL
     Indication: PRODUCT USED FOR UNKNOWN INDICATION
  3. DEPAKOTE [Suspect]
     Active Substance: DIVALPROEX SODIUM
     Indication: MIGRAINE PROPHYLAXIS
     Route: 065
  4. VERAPAMIL [Concomitant]
     Active Substance: VERAPAMIL HYDROCHLORIDE
     Indication: PRODUCT USED FOR UNKNOWN INDICATION
  5. DEPAKOTE [Suspect]
     Active Substance: DIVALPROEX SODIUM
     Route: 065

REACTIONS (3)
  - Blood glucose abnormal [Unknown]
  - Diabetes mellitus [Not Recovered/Not Resolved]
  - Migraine [Unknown]
